FAERS Safety Report 13258619 (Version 1)
Quarter: 2017Q1

REPORT INFORMATION
  Report Type: Report from Study
  Country: IE (occurrence: IE)
  Receive Date: 20170222
  Receipt Date: 20170222
  Transmission Date: 20170428
  Serious: Yes (Other)
  Sender: FDA-Public Use
  Company Number: IE-UCBSA-2017006998

PATIENT
  Age: 32 Year
  Sex: Female

DRUGS (3)
  1. PHENYTOIN. [Concomitant]
     Active Substance: PHENYTOIN
     Indication: PARTIAL SEIZURES
     Dosage: UNKNOWN DOSE
  2. LACOSAMIDE. [Suspect]
     Active Substance: LACOSAMIDE
     Indication: PARTIAL SEIZURES
     Dosage: 100 MG, 2X/DAY (BID)
  3. CARBAMAZEPINE. [Concomitant]
     Active Substance: CARBAMAZEPINE
     Indication: PARTIAL SEIZURES
     Dosage: UNKNOWN DOSE

REACTIONS (2)
  - Drug ineffective [Unknown]
  - Generalised tonic-clonic seizure [Unknown]
